FAERS Safety Report 8548032-6 (Version None)
Quarter: 2012Q3

REPORT INFORMATION
  Report Type: 
  Country: None (occurrence: None)
  Receive Date: 20120730
  Receipt Date: 20120726
  Transmission Date: 20120928
  Serious: Yes (Hospitalization, Other)
  Sender: FDA-Public Use
  Company Number: CO-ROCHE-1093143

PATIENT
  Sex: Female

DRUGS (1)
  1. MABTHERA [Suspect]
     Indication: NON-HODGKIN'S LYMPHOMA
     Dosage: LAST DOSE ADMINISTERED ON 27/JUN/2012
     Route: 042
     Dates: start: 20111201

REACTIONS (3)
  - PULMONARY OEDEMA [None]
  - RENAL FAILURE ACUTE [None]
  - PERICARDIAL EFFUSION [None]
